FAERS Safety Report 14016233 (Version 1)
Quarter: 2017Q3

REPORT INFORMATION
  Report Type: Spontaneous
  Country: US (occurrence: US)
  Receive Date: 20170927
  Receipt Date: 20170927
  Transmission Date: 20171128
  Serious: No
  Sender: FDA-Public Use
  Company Number: US-SA-2016SA196015

PATIENT
  Age: 23 Year
  Sex: Female

DRUGS (1)
  1. LEMTRADA [Suspect]
     Active Substance: ALEMTUZUMAB
     Indication: RELAPSING-REMITTING MULTIPLE SCLEROSIS
     Route: 041
     Dates: start: 20161017, end: 20161018

REACTIONS (5)
  - Abdominal tenderness [Unknown]
  - Back pain [Unknown]
  - Abdominal pain upper [Unknown]
  - Abdominal pain [Unknown]
  - Anxiety [Unknown]

NARRATIVE: CASE EVENT DATE: 201610
